FAERS Safety Report 18861055 (Version 1)
Quarter: 2021Q1

REPORT INFORMATION
  Report Type: Report from Study
  Country: BR (occurrence: BR)
  Receive Date: 20210208
  Receipt Date: 20210208
  Transmission Date: 20210420
  Serious: Yes (Death, Hospitalization, Other)
  Sender: FDA-Public Use
  Company Number: NVSC2020BR318773

PATIENT
  Age: 67 Year
  Sex: Male

DRUGS (3)
  1. VOTRIENT [Suspect]
     Active Substance: PAZOPANIB HYDROCHLORIDE
     Indication: METASTATIC RENAL CELL CARCINOMA
  2. VOTRIENT [Suspect]
     Active Substance: PAZOPANIB HYDROCHLORIDE
     Indication: LUNG DISORDER
     Dosage: 2 DF, QD (DAILY)
     Route: 065
     Dates: start: 20200325
  3. VOTRIENT [Suspect]
     Active Substance: PAZOPANIB HYDROCHLORIDE
     Indication: RENAL CANCER
     Dosage: 400 MG
     Route: 048
     Dates: start: 202003

REACTIONS (7)
  - Metastatic renal cell carcinoma [Fatal]
  - Malignant neoplasm progression [Fatal]
  - Metastases to lung [Unknown]
  - Drug ineffective [Not Recovered/Not Resolved]
  - Pneumonia [Fatal]
  - Aphasia [Unknown]
  - Malaise [Unknown]

NARRATIVE: CASE EVENT DATE: 202010
